FAERS Safety Report 13897042 (Version 1)
Quarter: 2017Q3

REPORT INFORMATION
  Report Type: Spontaneous
  Country: US (occurrence: US)
  Receive Date: 20170821
  Receipt Date: 20170821
  Transmission Date: 20171127
  Serious: Yes (Disabling)
  Sender: FDA-Public Use
  Company Number: None

PATIENT
  Age: 70 Year
  Sex: Female

DRUGS (20)
  1. LEVOFLOXACIN. [Suspect]
     Active Substance: LEVOFLOXACIN
     Indication: POST PROCEDURAL INFECTION
     Route: 048
     Dates: start: 20170623, end: 20170703
  2. GABAPENTIN. [Concomitant]
     Active Substance: GABAPENTIN
  3. VITAMIN B12 [Concomitant]
     Active Substance: CYANOCOBALAMIN
  4. DIAZEPAM. [Concomitant]
     Active Substance: DIAZEPAM
  5. SYNTHROID [Concomitant]
     Active Substance: LEVOTHYROXINE SODIUM
  6. DOCUSATE [Concomitant]
     Active Substance: DOCUSATE
  7. VITAMIN B-1 [Concomitant]
     Active Substance: THIAMINE
  8. SIMVASTATIN. [Concomitant]
     Active Substance: SIMVASTATIN
  9. ZOLPIDEM SR [Concomitant]
  10. LACTULOSE. [Concomitant]
     Active Substance: LACTULOSE
  11. VITAMIN B COMPLEX [Concomitant]
     Active Substance: CYANOCOBALAMIN\DEXPANTHENOL\NIACINAMIDE\PYRIDOXINE HYDROCHLORIDE\RIBOFLAVIN 5^-PHOSPHATE SODIUM\THIAMINE HYDROCHLORIDE\VITAMIN B COMPLEX
  12. METOPROLOL ER [Concomitant]
     Active Substance: METOPROLOL SUCCINATE
  13. BIOTIN [Concomitant]
     Active Substance: BIOTIN
  14. LEVOFLOXACIN. [Suspect]
     Active Substance: LEVOFLOXACIN
     Indication: IRRIGATION THERAPY
     Route: 048
     Dates: start: 20170623, end: 20170703
  15. MIRALAX [Concomitant]
     Active Substance: POLYETHYLENE GLYCOL 3350
  16. METRONIDAZOLE. [Suspect]
     Active Substance: METRONIDAZOLE
     Route: 048
     Dates: start: 20170623, end: 20170703
  17. SEROQUEL XR [Concomitant]
     Active Substance: QUETIAPINE FUMARATE
  18. CYCLOBENAZEPRINE [Concomitant]
  19. LINZESS [Concomitant]
     Active Substance: LINACLOTIDE
  20. CALCIUM + VITAMIN D [Concomitant]
     Active Substance: CALCIUM\VITAMIN D

REACTIONS (1)
  - Neuropathy peripheral [None]

NARRATIVE: CASE EVENT DATE: 20170628
